FAERS Safety Report 5826741-7 (Version None)
Quarter: 2008Q3

REPORT INFORMATION
  Report Type: 
  Country: None (occurrence: None)
  Receive Date: 20080730
  Receipt Date: 20080726
  Transmission Date: 20090109
  Serious: Yes (Hospitalization, Other)
  Sender: FDA-Public Use
  Company Number: US-BAYER-200820526NA

PATIENT
  Sex: Male

DRUGS (6)
  1. CAMPATH [Suspect]
     Indication: CHRONIC LYMPHOCYTIC LEUKAEMIA
     Route: 042
     Dates: start: 20080301, end: 20080505
  2. TYLENOL [Concomitant]
     Indication: PREMEDICATION
  3. BENADRYL [Concomitant]
     Indication: PREMEDICATION
  4. SOLU-MEDROL [Concomitant]
     Indication: PREMEDICATION
  5. BACTRIM DS [Concomitant]
     Indication: ANTI-INFECTIVE THERAPY
     Route: 048
  6. FAMVIR [Concomitant]
     Indication: ANTI-INFECTIVE THERAPY
     Dosage: TOTAL DAILY DOSE: 500 MG
     Route: 048
     Dates: end: 20080418

REACTIONS (4)
  - BLOOD BILIRUBIN INCREASED [None]
  - CYTOMEGALOVIRUS TEST POSITIVE [None]
  - HEPATIC ENZYME INCREASED [None]
  - HERPES ZOSTER [None]
